FAERS Safety Report 19481729 (Version 1)
Quarter: 2021Q3

REPORT INFORMATION
  Report Type: Spontaneous
  Country: US (occurrence: US)
  Receive Date: 20210701
  Receipt Date: 20210701
  Transmission Date: 20211014
  Serious: No
  Sender: FDA-Public Use
  Company Number: US-JNJFOC-20210659810

PATIENT
  Sex: Male

DRUGS (2)
  1. BALVERSA [Suspect]
     Active Substance: ERDAFITINIB
     Indication: PRODUCT USED FOR UNKNOWN INDICATION
     Dosage: 4 MG 2 TABLETS ONCE A DAY
     Route: 048
     Dates: start: 20210322
  2. BALVERSA [Suspect]
     Active Substance: ERDAFITINIB
     Route: 048
     Dates: start: 2021

REACTIONS (6)
  - Lacrimation increased [Unknown]
  - Oedema peripheral [Unknown]
  - Nail discolouration [Unknown]
  - Alopecia [Unknown]
  - Gastrointestinal disorder [Unknown]
  - Onychomadesis [Unknown]
